FAERS Safety Report 16012942 (Version 1)
Quarter: 2019Q1

REPORT INFORMATION
  Report Type: Report from Study
  Country: IT (occurrence: IT)
  Receive Date: 20190227
  Receipt Date: 20190227
  Transmission Date: 20190418
  Serious: Yes (Hospitalization, Other)
  Sender: FDA-Public Use
  Company Number: IT-PFIZER INC-2019081771

PATIENT
  Age: 38 Year
  Sex: Male

DRUGS (6)
  1. OKI [Suspect]
     Active Substance: KETOPROFEN LYSINE
     Indication: INTENTIONAL SELF-INJURY
     Dosage: 1 DF, UNK
     Route: 048
     Dates: start: 20190202, end: 20190202
  2. ESOMEPRAZOLE SODIUM. [Suspect]
     Active Substance: ESOMEPRAZOLE SODIUM
     Indication: INTENTIONAL SELF-INJURY
     Dosage: 11 DF, UNK
     Route: 048
     Dates: start: 20190202, end: 20190202
  3. CARDIOASPIRIN [Suspect]
     Active Substance: ASPIRIN
     Indication: INTENTIONAL SELF-INJURY
     Dosage: 30 DF, TOTAL
     Route: 048
     Dates: start: 20190202, end: 20190202
  4. AMOXICILLIN TRIHYDRATE [Suspect]
     Active Substance: AMOXICILLIN
     Indication: INTENTIONAL SELF-INJURY
     Dosage: 2 DF, TOTAL
     Route: 048
     Dates: start: 20190202, end: 20190202
  5. ATORVASTATIN CALCIUM. [Suspect]
     Active Substance: ATORVASTATIN CALCIUM
     Indication: INTENTIONAL SELF-INJURY
     Dosage: 4 DF, TOTAL
     Route: 048
     Dates: start: 20190202, end: 20190202
  6. TACHIPIRINA [Suspect]
     Active Substance: ACETAMINOPHEN
     Indication: INTENTIONAL SELF-INJURY
     Dosage: 2 DF, TOTAL
     Route: 048
     Dates: start: 20190202, end: 20190202

REACTIONS (3)
  - Agitation [Recovered/Resolved]
  - Intentional self-injury [Recovered/Resolved]
  - Drug abuse [Recovered/Resolved]

NARRATIVE: CASE EVENT DATE: 20190202
